FAERS Safety Report 14572775 (Version 1)
Quarter: 2018Q1

REPORT INFORMATION
  Report Type: Spontaneous
  Country: FR (occurrence: FR)
  Receive Date: 20180226
  Receipt Date: 20180226
  Transmission Date: 20180509
  Serious: Yes (Hospitalization)
  Sender: FDA-Public Use
  Company Number: FR-SA-2018SA048818

PATIENT
  Sex: Male

DRUGS (4)
  1. DUPIXENT [Suspect]
     Active Substance: DUPILUMAB
     Indication: DERMATITIS ATOPIC
     Route: 058
  2. METHOTREXATE. [Concomitant]
     Active Substance: METHOTREXATE
     Route: 065
     Dates: start: 20171020
  3. METHOTREXATE. [Concomitant]
     Active Substance: METHOTREXATE
     Route: 065
     Dates: start: 20171103
  4. DUPIXENT [Suspect]
     Active Substance: DUPILUMAB
     Indication: DERMATITIS ATOPIC
     Route: 058
     Dates: start: 20171205, end: 20171205

REACTIONS (13)
  - Skin erosion [Recovering/Resolving]
  - Inflammation [Recovering/Resolving]
  - Superinfection [Recovering/Resolving]
  - Dermatitis atopic [Recovering/Resolving]
  - Skin exfoliation [Recovered/Resolved]
  - Rash papular [Recovering/Resolving]
  - Sleep disorder [Unknown]
  - Erythema [Recovering/Resolving]
  - Rosacea [Recovering/Resolving]
  - Flushing [Recovering/Resolving]
  - Conjunctivitis [Recovering/Resolving]
  - Pain [Recovering/Resolving]
  - Skin disorder [Recovering/Resolving]

NARRATIVE: CASE EVENT DATE: 2018
